FAERS Safety Report 9115863 (Version 1)
Quarter: 2013Q1

REPORT INFORMATION
  Report Type: Spontaneous
  Country: US (occurrence: US)
  Receive Date: 20130225
  Receipt Date: 20130225
  Transmission Date: 20140127
  Serious: Yes (Hospitalization)
  Sender: FDA-Public Use
  Company Number: US-GLAXOSMITHKLINE-A1012058A

PATIENT
  Age: 71 Year
  Sex: Female

DRUGS (21)
  1. VOTRIENT [Suspect]
     Indication: RENAL CELL CARCINOMA
     Dosage: 4TAB PER DAY
     Route: 048
     Dates: start: 201212, end: 20130211
  2. PHENERGAN [Concomitant]
  3. XANAX [Concomitant]
  4. MEGESTROL [Concomitant]
  5. PROTONIX [Concomitant]
  6. BYSTOLIC [Concomitant]
  7. ALBUTEROL NEBULIZER [Concomitant]
  8. OXYGEN [Concomitant]
  9. VITAMIN B12 SHOT [Concomitant]
  10. DIOVAN [Concomitant]
  11. BACLOFEN [Concomitant]
  12. LEVOXYL [Concomitant]
  13. VITAMIN D3 [Concomitant]
  14. STOOL SOFTENER [Concomitant]
  15. ADVAIR [Concomitant]
  16. MUCINEX [Concomitant]
  17. THERAFLU [Concomitant]
  18. INFLUENZA VACCINE [Concomitant]
  19. STEROIDS [Concomitant]
  20. LOVENOX [Concomitant]
  21. RADIATION [Concomitant]

REACTIONS (5)
  - Myocardial infarction [Not Recovered/Not Resolved]
  - Pneumonia [Not Recovered/Not Resolved]
  - Hypertension [Not Recovered/Not Resolved]
  - Dyspnoea [Not Recovered/Not Resolved]
  - Anxiety [Not Recovered/Not Resolved]
